FAERS Safety Report 8010650-1 (Version None)
Quarter: 2011Q4

REPORT INFORMATION
  Report Type: 
  Country: None (occurrence: None)
  Receive Date: 20111228
  Receipt Date: 20111226
  Transmission Date: 20120403
  Serious: Yes (Other)
  Sender: FDA-Public Use
  Company Number: PHHY2011JP109310

PATIENT
  Sex: Male

DRUGS (7)
  1. CARVEDILOL [Suspect]
  2. OMEPRAZOLE [Suspect]
  3. DIOVAN [Suspect]
     Indication: HYPERTENSION
     Dosage: UNK
     Route: 048
     Dates: start: 20111001
  4. PURSENNID [Suspect]
  5. CRESTOR [Suspect]
  6. ROHYPNOL [Suspect]
  7. ASPIRIN [Suspect]

REACTIONS (1)
  - PEMPHIGUS [None]
